APPROVED DRUG PRODUCT: METOPROLOL TARTRATE
Active Ingredient: METOPROLOL TARTRATE
Strength: 25MG
Dosage Form/Route: TABLET;ORAL
Application: A202871 | Product #001 | TE Code: AB
Applicant: ALEMBIC PHARMACEUTICALS LTD
Approved: May 28, 2013 | RLD: No | RS: No | Type: RX